FAERS Safety Report 21910262 (Version 1)
Quarter: 2023Q1

REPORT INFORMATION
  Report Type: Spontaneous
  Country: US (occurrence: US)
  Receive Date: 20230125
  Receipt Date: 20230125
  Transmission Date: 20230418
  Serious: No
  Sender: FDA-Public Use
  Company Number: US-ALLERGAN-2209818US

PATIENT
  Sex: Female
  Weight: 94.3 kg

DRUGS (32)
  1. BOTOX [Suspect]
     Active Substance: ONABOTULINUMTOXINA
     Indication: Migraine
     Dosage: 30 UNITS, SINGLE
     Dates: start: 20220112, end: 20220112
  2. BOTOX [Suspect]
     Active Substance: ONABOTULINUMTOXINA
     Dosage: 20 UNITS, SINGLE
     Dates: start: 20220112, end: 20220112
  3. BOTOX [Suspect]
     Active Substance: ONABOTULINUMTOXINA
     Dosage: 30 UNITS, SINGLE
     Dates: start: 20220112, end: 20220112
  4. BOTOX [Suspect]
     Active Substance: ONABOTULINUMTOXINA
     Dosage: 40 UNITS, SINGLE
     Dates: start: 20220112, end: 20220112
  5. BOTOX [Suspect]
     Active Substance: ONABOTULINUMTOXINA
     Dosage: 20 UNITS, SINGLE
     Dates: start: 20220112, end: 20220112
  6. BOTOX [Suspect]
     Active Substance: ONABOTULINUMTOXINA
     Dosage: 5 UNITS, SINGLE
     Dates: start: 20220112, end: 20220112
  7. BOTOX [Suspect]
     Active Substance: ONABOTULINUMTOXINA
     Dosage: 10 UNITS, SINGLE
     Dates: start: 20220112, end: 20220112
  8. UBRELVY [Concomitant]
     Active Substance: UBROGEPANT
     Indication: Migraine
     Dosage: 1 DF, QD, AS NEEDED. MAY REPEAT ONCE AFTER 2 HRS BASED ON RESPONSE
     Route: 048
     Dates: start: 20210810, end: 20211109
  9. CALCIUM ASCORBATE [Concomitant]
     Active Substance: CALCIUM ASCORBATE
     Dosage: 500 MG, QD
     Route: 048
  10. BUSPAR [Concomitant]
     Active Substance: BUSPIRONE HYDROCHLORIDE
     Dosage: 10 MG, BID
     Route: 048
  11. CHOLECALCIFEROL [Concomitant]
     Active Substance: CHOLECALCIFEROL
     Dosage: 5000 UNITS, QD
     Dates: start: 20171128
  12. DEXTROAMPHET SACCHARAT, AMPHET ASPARTATE, DEXTROAMPHET SULFATE AND AMP [Concomitant]
     Active Substance: AMPHETAMINE ASPARTATE\AMPHETAMINE SULFATE\DEXTROAMPHETAMINE SACCHARATE\DEXTROAMPHETAMINE SULFATE
     Dosage: UNK, PRN
     Route: 048
  13. DICLOFENAC SODIUM [Concomitant]
     Active Substance: DICLOFENAC SODIUM
     Dosage: APPLY 1-2 PUMPS APPLIES TO AFECTED AREA
     Route: 061
     Dates: start: 20210309
  14. DICLOFENAC DIETHYLAMINE [Concomitant]
     Active Substance: DICLOFENAC DIETHYLAMINE
     Dosage: UNK, QID
     Route: 061
     Dates: start: 20210913
  15. BENADRYL [Concomitant]
     Active Substance: DIPHENHYDRAMINE HYDROCHLORIDE
     Indication: Headache
     Dosage: 1 DF, Q6HR
     Route: 048
     Dates: start: 20160202
  16. CYMBALTA [Concomitant]
     Active Substance: DULOXETINE HYDROCHLORIDE
     Dosage: 30 MG, QD + 60 MG
     Route: 048
     Dates: start: 20210518, end: 20211130
  17. CYMBALTA [Concomitant]
     Active Substance: DULOXETINE HYDROCHLORIDE
     Dosage: 60 MG, QD +30 MG
     Route: 048
     Dates: start: 20210518, end: 20211130
  18. LUNESTA [Concomitant]
     Active Substance: ESZOPICLONE
     Dosage: ONE HALF TABLET, QHS
     Route: 048
     Dates: start: 20210729, end: 20220302
  19. NEXPLANON [Concomitant]
     Active Substance: ETONOGESTREL
     Dosage: 68 MG
     Route: 059
  20. OMEGA 3 FLAX SEED OIL [Concomitant]
     Dosage: 500 MG, QD
     Route: 048
  21. NEURONTIN [Concomitant]
     Active Substance: GABAPENTIN
     Dosage: 1 DF, BID (START WITH 1 DF AT NIGHT FOR 1 WEEK. IF TOLERATING THEN INCREASE TO TWICE DAILY)
     Route: 048
     Dates: start: 20210222, end: 20220218
  22. EMGALITY [Concomitant]
     Active Substance: GALCANEZUMAB-GNLM
     Indication: Migraine prophylaxis
     Dosage: 1 ML, Q 30 DAYS
     Route: 058
     Dates: start: 20210910, end: 20211028
  23. DIETARY SUPPLEMENT\PROBIOTICS [Concomitant]
     Active Substance: DIETARY SUPPLEMENT\PROBIOTICS
     Dosage: 1 DF, QD
     Route: 048
     Dates: start: 20170405
  24. EMLA [Concomitant]
     Active Substance: LIDOCAINE\PRILOCAINE
     Dosage: 1 G TO AFECTEC AREA AS NEEDED
     Route: 061
     Dates: start: 20210913
  25. MAGNESIUM GLUCONATE [Concomitant]
     Active Substance: MAGNESIUM GLUCONATE
     Dosage: 500 MG, QD
     Route: 048
  26. MOBIC [Concomitant]
     Active Substance: MELOXICAM
     Dosage: 15 MG, QD
     Route: 048
     Dates: start: 20210913, end: 20211111
  27. VITAMINS NOS [Concomitant]
     Active Substance: VITAMINS
     Dosage: 1 DF, QD
     Route: 048
     Dates: start: 20160526
  28. CLENIA [Concomitant]
     Active Substance: SULFACETAMIDE SODIUM\SULFUR
     Dosage: UNK
     Dates: start: 20210728
  29. ZANAFLEX [Concomitant]
     Active Substance: TIZANIDINE HYDROCHLORIDE
     Indication: Myalgia
     Dosage: 1-2MG IN THE AM AND 2 MG AT BEDTIME AS NEEDED
     Dates: start: 20211004, end: 20211029
  30. RETIN-A [Concomitant]
     Active Substance: TRETINOIN
     Dosage: UNK
     Dates: start: 20210728
  31. DIETARY SUPPLEMENT\UBIDECARENONE [Concomitant]
     Active Substance: DIETARY SUPPLEMENT\UBIDECARENONE
     Dosage: 100 MG, QD
     Route: 048
     Dates: start: 20170320
  32. RINVOQ [Concomitant]
     Active Substance: UPADACITINIB
     Dosage: 1 DF, QD
     Route: 048
     Dates: start: 20210914, end: 20211207

REACTIONS (1)
  - Therapeutic response decreased [Unknown]
